FAERS Safety Report 11844603 (Version 1)
Quarter: 2015Q4

REPORT INFORMATION
  Report Type: Spontaneous
  Country: US (occurrence: US)
  Receive Date: 20151217
  Receipt Date: 20151217
  Transmission Date: 20160305
  Serious: No
  Sender: FDA-Public Use
  Company Number: US-TEVA-593631USA

PATIENT
  Sex: Female

DRUGS (2)
  1. DULOXETINE. [Suspect]
     Active Substance: DULOXETINE
     Route: 065
  2. CYMBALTA GENERIC ACTAVIS [Suspect]
     Active Substance: DULOXETINE HYDROCHLORIDE
     Route: 065

REACTIONS (9)
  - Anxiety [Unknown]
  - Product substitution issue [Unknown]
  - Feeling abnormal [Unknown]
  - Depressed mood [Unknown]
  - Apathy [Unknown]
  - Therapeutic product ineffective [Unknown]
  - Depression [Unknown]
  - General physical health deterioration [Unknown]
  - Social avoidant behaviour [Unknown]
